FAERS Safety Report 25896722 (Version 1)
Quarter: 2025Q4

REPORT INFORMATION
  Report Type: Spontaneous
  Country: US (occurrence: US)
  Receive Date: 20251008
  Receipt Date: 20251008
  Transmission Date: 20260117
  Serious: No
  Sender: COSETTE PHARMACEUTICALS INC
  Company Number: US-COSETTE-CP2025US000966

PATIENT
  Sex: Female

DRUGS (6)
  1. GRISEOFULVIN [Suspect]
     Active Substance: GRISEOFULVIN
     Indication: Pruritus
     Route: 065
  2. HYDROCORTISONE VALERATE [Suspect]
     Active Substance: HYDROCORTISONE VALERATE
     Indication: Pruritus
     Route: 065
  3. LORATADINE [Suspect]
     Active Substance: LORATADINE
     Indication: Pruritus
     Route: 065
  4. PREDNISOLONE [Suspect]
     Active Substance: PREDNISOLONE
     Indication: Pruritus
     Route: 065
  5. CETIRIZINE HYDROCHLORIDE [Suspect]
     Active Substance: CETIRIZINE HYDROCHLORIDE
     Indication: Pruritus
     Route: 065
  6. FLUCONAZOLE [Suspect]
     Active Substance: FLUCONAZOLE
     Indication: Pruritus
     Route: 065

REACTIONS (3)
  - Rash pruritic [Unknown]
  - Condition aggravated [Unknown]
  - Drug ineffective [Unknown]
